FAERS Safety Report 15301725 (Version 1)
Quarter: 2018Q3

REPORT INFORMATION
  Report Type: Spontaneous
  Country: CL (occurrence: CL)
  Receive Date: 20180821
  Receipt Date: 20180821
  Transmission Date: 20181010
  Serious: Yes (Other)
  Sender: FDA-Public Use
  Company Number: PHHY2018CL072392

PATIENT
  Age: 6 Month
  Sex: Male

DRUGS (6)
  1. BETAMETHASONE DIPROPIONATE. [Suspect]
     Active Substance: BETAMETHASONE DIPROPIONATE
     Indication: DERMATITIS
     Dosage: UNK
     Route: 065
  2. CLOTRIMAZOLE. [Suspect]
     Active Substance: CLOTRIMAZOLE
     Indication: DERMATITIS
     Dosage: UNK
     Route: 061
  3. HYDROCORTISONE. [Suspect]
     Active Substance: HYDROCORTISONE
     Indication: DERMATITIS
     Dosage: 1 %, UNK
     Route: 061
  4. HYDROCORTISONE. [Suspect]
     Active Substance: HYDROCORTISONE
     Dosage: 8 MG/M2, QD
     Route: 048
  5. HYDROCORTISONE. [Suspect]
     Active Substance: HYDROCORTISONE
     Dosage: 13.5 MG/M2, QD
     Route: 048
  6. HYDROCORTISONE. [Suspect]
     Active Substance: HYDROCORTISONE
     Dosage: 13 MG/M2, QD
     Route: 048

REACTIONS (8)
  - Cushingoid [Recovering/Resolving]
  - Cushing^s syndrome [Recovering/Resolving]
  - Growth retardation [Unknown]
  - Hypertrichosis [Recovering/Resolving]
  - Obesity [Recovering/Resolving]
  - Dyslipidaemia [Unknown]
  - Body height below normal [Unknown]
  - Hypertension [Unknown]
